FAERS Safety Report 7262695-7 (Version None)
Quarter: 2011Q1

REPORT INFORMATION
  Report Type: 
  Country: None (occurrence: None)
  Receive Date: 20110130
  Receipt Date: 20101019
  Transmission Date: 20110831
  Serious: No
  Sender: FDA-Public Use
  Company Number: US-ABBOTT-10P-163-0673706-00

PATIENT
  Age: 22 Year
  Sex: Female

DRUGS (6)
  1. PROCHLORPERAZINE [Concomitant]
     Indication: CROHN'S DISEASE
  2. LOESTRIN 24 FE [Concomitant]
     Indication: CONTRACEPTION
     Dosage: DAILY
  3. IMODIUM [Concomitant]
     Indication: DIARRHOEA
  4. IMODIUM [Concomitant]
     Indication: CROHN'S DISEASE
  5. PROCHLORPERAZINE [Concomitant]
     Indication: NAUSEA
  6. HUMIRA [Suspect]
     Indication: CROHN'S DISEASE

REACTIONS (3)
  - INJECTION SITE PAIN [None]
  - INJECTION SITE HAEMORRHAGE [None]
  - INJECTION SITE HAEMATOMA [None]
